FAERS Safety Report 9614770 (Version 1)
Quarter: 2013Q4

REPORT INFORMATION
  Report Type: Report from Study
  Country: US (occurrence: US)
  Receive Date: 20131011
  Receipt Date: 20131011
  Transmission Date: 20140711
  Serious: Yes (Hospitalization)
  Sender: FDA-Public Use
  Company Number: PHEH2013US021024

PATIENT
  Age: 63 Year
  Sex: Female

DRUGS (1)
  1. SANDIMMUNE NEORAL [Suspect]
     Indication: RENAL TRANSPLANT

REACTIONS (1)
  - Limb injury [Unknown]
